FAERS Safety Report 12245068 (Version 3)
Quarter: 2016Q2

REPORT INFORMATION
  Report Type: Spontaneous
  Country: US (occurrence: US)
  Receive Date: 20160407
  Receipt Date: 20160418
  Transmission Date: 20160815
  Serious: No
  Sender: FDA-Public Use
  Company Number: US-TEVA-625031USA

PATIENT
  Age: 57 Year
  Sex: Female

DRUGS (2)
  1. ZECUITY [Suspect]
     Active Substance: SUMATRIPTAN SUCCINATE
     Indication: MIGRAINE
     Dosage: 6.5 MG / 4 HOURS
     Route: 062
  2. ZECUITY [Suspect]
     Active Substance: SUMATRIPTAN SUCCINATE
     Dosage: 6.5 MG / 4 HOURS
     Route: 062
     Dates: start: 20160221, end: 20160221

REACTIONS (5)
  - Application site pain [Unknown]
  - Application site discolouration [Unknown]
  - Device use error [Unknown]
  - Device battery issue [Unknown]
  - Application site pruritus [Unknown]

NARRATIVE: CASE EVENT DATE: 2016
